FAERS Safety Report 4562430-7 (Version None)
Quarter: 2005Q1

REPORT INFORMATION
  Report Type: 
  Country: None (occurrence: None)
  Receive Date: 20050124
  Receipt Date: 20041221
  Transmission Date: 20050727
  Serious: Yes (Death)
  Sender: FDA-Public Use
  Company Number: 2005-BP-00166YA

PATIENT
  Age: 68 Year
  Sex: Male

DRUGS (7)
  1. OMNIC CAPSULES (TAMSULOSIN) (KA) [Suspect]
     Indication: PROSTATISM
     Dosage: 0.4 MG
     Route: 048
     Dates: start: 20041123, end: 20041124
  2. NITROGLYCERIN [Concomitant]
  3. DILTIAZEM HYDROCHLORIDE [Concomitant]
  4. TIMOLOL MALEATE [Concomitant]
  5. ISOSORBIDE MONONITRATE [Concomitant]
  6. SIMVASTATIN [Concomitant]
  7. ALBYL-E (ALBYL-ENTEROSOLUBLE) [Concomitant]

REACTIONS (3)
  - PAIN [None]
  - SUDDEN DEATH [None]
  - URINARY RETENTION [None]
